FAERS Safety Report 11698640 (Version 1)
Quarter: 2015Q4

REPORT INFORMATION
  Report Type: Spontaneous
  Country: US (occurrence: US)
  Receive Date: 20151104
  Receipt Date: 20151104
  Transmission Date: 20160304
  Serious: No
  Sender: FDA-Public Use
  Company Number: US-AKRIMAX-TIR-2015-0180

PATIENT
  Age: 46 Year
  Sex: Female
  Weight: 49.03 kg

DRUGS (4)
  1. TIROSINT [Suspect]
     Active Substance: LEVOTHYROXINE SODIUM
     Indication: HYPOTHYROIDISM
     Dosage: 25MCG DAILY
     Route: 048
     Dates: start: 20150903
  2. TIROSINT [Suspect]
     Active Substance: LEVOTHYROXINE SODIUM
     Indication: AUTOIMMUNE THYROIDITIS
  3. NALTREXONE [Concomitant]
     Active Substance: NALTREXONE
     Indication: AUTOIMMUNE THYROIDITIS
  4. NALTREXONE [Concomitant]
     Active Substance: NALTREXONE
     Indication: AUTOIMMUNE DISORDER

REACTIONS (5)
  - Erythema [Unknown]
  - Rash pruritic [Unknown]
  - Skin irritation [Unknown]
  - Rash [Unknown]
  - Hypersensitivity [Unknown]

NARRATIVE: CASE EVENT DATE: 201509
